FAERS Safety Report 6565875-9 (Version None)
Quarter: 2010Q1

REPORT INFORMATION
  Report Type: 
  Country: None (occurrence: None)
  Receive Date: 20100126
  Receipt Date: 20100122
  Transmission Date: 20100710
  Serious: Yes (Death, Hospitalization)
  Sender: FDA-Public Use
  Company Number: 2010SP004758

PATIENT
  Age: 63 Year
  Sex: Male
  Weight: 56 kg

DRUGS (9)
  1. TEMODAL [Suspect]
     Indication: DRUG USE FOR UNKNOWN INDICATION
     Dosage: 125 MG; QD; PO
     Route: 048
     Dates: start: 20090122, end: 20090218
  2. CEFIXIME CHEWABLE [Suspect]
     Indication: BRONCHITIS
     Dosage: 200 MG; BID; PO
     Route: 048
     Dates: start: 20090210, end: 20090301
  3. CIPROFLOXACIN [Suspect]
     Indication: BRONCHITIS
     Dosage: 500 MG; BID; PO
     Route: 048
     Dates: start: 20090210, end: 20090301
  4. SOLUPRED (PREDNISOLONE SODIUM SULFOBENZOATE) [Suspect]
     Indication: BRAIN OEDEMA
     Dosage: 20 MG; BID; PO
     Route: 048
     Dates: start: 20090122
  5. OMEPRAZOLE [Concomitant]
  6. PYOSTACINE [Concomitant]
  7. VANCOMYCIN HCL [Concomitant]
  8. AMIKIN [Concomitant]
  9. FORTUM [Concomitant]

REACTIONS (15)
  - BACTERIAL TEST POSITIVE [None]
  - BLOOD PRESSURE INCREASED [None]
  - BONE MARROW FAILURE [None]
  - BRONCHITIS [None]
  - CONDITION AGGRAVATED [None]
  - GAIT DISTURBANCE [None]
  - HYPERTHERMIA [None]
  - HYPOVOLAEMIC SHOCK [None]
  - LUNG DISORDER [None]
  - PSEUDOMONAS INFECTION [None]
  - RESPIRATORY DISTRESS [None]
  - SEPTIC SHOCK [None]
  - SHOCK [None]
  - THROMBOCYTOPENIA [None]
  - UNEVALUABLE EVENT [None]
